FAERS Safety Report 18040715 (Version 1)
Quarter: 2020Q3

REPORT INFORMATION
  Report Type: Report from Study
  Country: CA (occurrence: CA)
  Receive Date: 20200717
  Receipt Date: 20200717
  Transmission Date: 20201103
  Serious: Yes (Other)
  Sender: FDA-Public Use
  Company Number: PHHY2013CA082837

PATIENT
  Age: 30 Year
  Sex: Female

DRUGS (10)
  1. SANDOSTATIN LAR DEPOT [Suspect]
     Active Substance: OCTREOTIDE ACETATE
     Dosage: 20 MG, QMO
     Route: 030
  2. SANDOSTATIN LAR DEPOT [Suspect]
     Active Substance: OCTREOTIDE ACETATE
     Dosage: 30 MG, QMO
     Route: 030
  3. CAPRELSA [Suspect]
     Active Substance: VANDETANIB
     Indication: PRODUCT USED FOR UNKNOWN INDICATION
     Dosage: UNK
     Route: 065
  4. SANDOSTATIN LAR DEPOT [Suspect]
     Active Substance: OCTREOTIDE ACETATE
     Dosage: 40 MG, QMO (EVERY 4 WEEKS)
     Route: 030
  5. SANDOSTATIN LAR DEPOT [Suspect]
     Active Substance: OCTREOTIDE ACETATE
     Dosage: 60 MG, QMO
     Route: 030
     Dates: end: 2020
  6. SYNTHROID [Concomitant]
     Active Substance: LEVOTHYROXINE SODIUM
     Indication: PRODUCT USED FOR UNKNOWN INDICATION
     Dosage: 1 MG, UNK
     Route: 065
     Dates: start: 201405
  7. SANDOSTATIN [Suspect]
     Active Substance: OCTREOTIDE ACETATE
     Indication: NEUROENDOCRINE TUMOUR
     Dosage: 50 UG, ONCE/SINGLE (TEST DOSE)
     Route: 058
     Dates: start: 20130114, end: 20130114
  8. SANDOSTATIN LAR DEPOT [Suspect]
     Active Substance: OCTREOTIDE ACETATE
     Indication: NEUROENDOCRINE TUMOUR
     Dosage: 30 MG, QMO
     Route: 030
     Dates: start: 20130114
  9. VANDETANIB. [Concomitant]
     Active Substance: VANDETANIB
     Indication: PRODUCT USED FOR UNKNOWN INDICATION
     Dosage: 300 MG, QD
     Route: 048
  10. SANDOSTATIN LAR DEPOT [Suspect]
     Active Substance: OCTREOTIDE ACETATE
     Dosage: 20 MG,  (TWICE PER MOTH)
     Route: 030

REACTIONS (21)
  - Helicobacter gastritis [Unknown]
  - Muscle spasms [Unknown]
  - Uterine mass [Unknown]
  - Incorrect dose administered [Unknown]
  - Injection site rash [Unknown]
  - Diarrhoea [Not Recovered/Not Resolved]
  - Body temperature decreased [Unknown]
  - Blood pressure decreased [Unknown]
  - Injection site pruritus [Unknown]
  - Drug ineffective [Unknown]
  - Nasopharyngitis [Unknown]
  - Hypersomnia [Unknown]
  - Dermatitis acneiform [Unknown]
  - Injection site pain [Recovered/Resolved]
  - Mass [Unknown]
  - Injection site mass [Unknown]
  - Infection [Unknown]
  - Blood pressure increased [Unknown]
  - Cyst [Unknown]
  - Asthenia [Unknown]
  - Injection site erythema [Recovered/Resolved]

NARRATIVE: CASE EVENT DATE: 201301
